FAERS Safety Report 16415304 (Version 1)
Quarter: 2019Q3

REPORT INFORMATION
  Report Type: Spontaneous
  Country: US (occurrence: US)
  Receive Date: 20190610
  Receipt Date: 20190610
  Transmission Date: 20191004
  Serious: Yes (Other)
  Sender: FDA-Public Use
  Company Number: None

PATIENT
  Age: 14 Year
  Sex: Male
  Weight: 60.75 kg

DRUGS (1)
  1. DOXYCYCLINE HYCLATE CAPS 100MG, GENERIC FOR VIBRAMYCIN [Suspect]
     Active Substance: DOXYCYCLINE HYCLATE
     Indication: ACNE
     Dosage: ?          QUANTITY:60 CAPSULE(S);?
     Route: 048
     Dates: start: 20190308, end: 20190312

REACTIONS (3)
  - Urticaria [None]
  - Insomnia [None]
  - Skin burning sensation [None]

NARRATIVE: CASE EVENT DATE: 20190312
